FAERS Safety Report 23850733 (Version 1)
Quarter: 2024Q2

REPORT INFORMATION
  Report Type: Spontaneous
  Country: US (occurrence: US)
  Receive Date: 20240514
  Receipt Date: 20240514
  Transmission Date: 20240716
  Serious: Yes (Hospitalization)
  Sender: FDA-Public Use
  Company Number: US-JNJFOC-20240512441

PATIENT
  Age: 84 Year
  Sex: Male
  Weight: 104 kg

DRUGS (1)
  1. AKEEGA [Suspect]
     Active Substance: ABIRATERONE ACETATE\NIRAPARIB TOSYLATE MONOHYDRATE
     Indication: Prostate cancer
     Route: 048

REACTIONS (3)
  - Fatigue [Recovering/Resolving]
  - Haemorrhage urinary tract [Recovering/Resolving]
  - Thrombosis [Recovering/Resolving]
